FAERS Safety Report 5503656-5 (Version None)
Quarter: 2007Q4

REPORT INFORMATION
  Report Type: 
  Country: None (occurrence: None)
  Receive Date: 20071101
  Receipt Date: 20071022
  Transmission Date: 20080405
  Serious: Yes (Other)
  Sender: FDA-Public Use
  Company Number: PHHO2007AR07294

PATIENT
  Age: 68 Year
  Sex: Female

DRUGS (3)
  1. ZELNORM [Suspect]
     Indication: IRRITABLE BOWEL SYNDROME
     Dosage: UP TO 3 TABLETS DAILY
     Route: 048
     Dates: start: 20040201
  2. OMEPRAZOLE [Concomitant]
  3. TRIMEBUTINE [Concomitant]

REACTIONS (2)
  - GASTRIC POLYPECTOMY [None]
  - GASTRIC POLYPS [None]
